FAERS Safety Report 7786382-1 (Version None)
Quarter: 2011Q3

REPORT INFORMATION
  Report Type: 
  Country: None (occurrence: None)
  Receive Date: 20110929
  Receipt Date: 20110927
  Transmission Date: 20111222
  Serious: Yes (Death, Hospitalization)
  Sender: FDA-Public Use
  Company Number: PHEH2011US04927

PATIENT
  Sex: Female

DRUGS (1)
  1. GLEEVEC [Suspect]
     Indication: ACUTE LYMPHOCYTIC LEUKAEMIA
     Dosage: 400 MG, DAILY
     Route: 048
     Dates: start: 20101220, end: 20110709

REACTIONS (5)
  - MALAISE [None]
  - STREPTOCOCCAL INFECTION [None]
  - ACUTE LYMPHOCYTIC LEUKAEMIA [None]
  - HYPOTENSION [None]
  - PAIN IN EXTREMITY [None]
